FAERS Safety Report 22274259 (Version 1)
Quarter: 2023Q2

REPORT INFORMATION
  Report Type: Spontaneous
  Country: CA (occurrence: CA)
  Receive Date: 20230502
  Receipt Date: 20230502
  Transmission Date: 20230722
  Serious: Yes (Other)
  Sender: FDA-Public Use
  Company Number: CA-Covis Pharma Europe B.V.-2023COV01030

PATIENT
  Age: 11 Year
  Sex: Female

DRUGS (2)
  1. CICLESONIDE [Suspect]
     Active Substance: CICLESONIDE
     Indication: Asthma prophylaxis
     Route: 065
  2. OMALIZUMAB [Suspect]
     Active Substance: OMALIZUMAB
     Indication: Asthma

REACTIONS (7)
  - Adrenal insufficiency [Unknown]
  - Asthma [Unknown]
  - Burning sensation [Unknown]
  - Eosinophilic oesophagitis [Unknown]
  - Hypersensitivity [Unknown]
  - Injection site swelling [Unknown]
  - Skin lesion [Unknown]
